FAERS Safety Report 25640961 (Version 4)
Quarter: 2025Q4

REPORT INFORMATION
  Report Type: Spontaneous
  Country: US (occurrence: US)
  Receive Date: 20250804
  Receipt Date: 20251218
  Transmission Date: 20260118
  Serious: No
  Sender: SANOFI AVENTIS
  Company Number: US-SA-2025SA223177

PATIENT
  Age: 32 Year
  Sex: Male

DRUGS (3)
  1. ALTUVIIIO [Suspect]
     Active Substance: EFANESOCTOCOG ALFA
     Indication: Factor VIII deficiency
     Dosage: 4200 UNITS (3780-4620), QW AND AND DAILY AS NEEDED PRN
     Route: 042
     Dates: start: 202503
  2. ALTUVIIIO [Suspect]
     Active Substance: EFANESOCTOCOG ALFA
     Indication: Haemorrhage prophylaxis
     Dosage: 4200 UNITS (3780-4620), QW AND AND DAILY AS NEEDED PRN
     Route: 042
     Dates: start: 202503
  3. ALTUVIIIO [Suspect]
     Active Substance: EFANESOCTOCOG ALFA
     Dosage: 4000 IU, QW
     Route: 042
     Dates: start: 202503

REACTIONS (3)
  - Haemorrhage [Unknown]
  - Vein collapse [Unknown]
  - Haemorrhage [Unknown]

NARRATIVE: CASE EVENT DATE: 20250101
